FAERS Safety Report 10056843 (Version 2)
Quarter: 2014Q2

REPORT INFORMATION
  Report Type: Report from Study
  Country: IN (occurrence: IN)
  Receive Date: 20140403
  Receipt Date: 20140403
  Transmission Date: 20141212
  Serious: Yes (Other)
  Sender: FDA-Public Use
  Company Number: PHHY2013IN094547

PATIENT
  Age: 61 Year
  Sex: Male
  Weight: 55 kg

DRUGS (15)
  1. MYCOPHENOLIC ACID [Suspect]
     Indication: RENAL TRANSPLANT
     Dosage: 2 DF, BID
     Dates: start: 20111024
  2. MYCOPHENOLIC ACID [Suspect]
     Dosage: 1.5 DF, BID
     Dates: start: 20111109
  3. MYCOPHENOLIC ACID [Suspect]
     Dosage: 1 DF, BID
     Dates: start: 20120126
  4. TACROLIMUS [Suspect]
     Indication: RENAL TRANSPLANT
     Dosage: 3 MG, BID
     Dates: start: 20111024
  5. TACROLIMUS [Suspect]
     Dosage: 3 MG, BID
     Dates: start: 20111109
  6. TACROLIMUS [Suspect]
     Dosage: 2 MG, BID
     Dates: start: 20120124
  7. TACROLIMUS [Suspect]
     Dosage: 1.5 MG, BID
     Dates: start: 20120124
  8. DECADRON [Concomitant]
     Dosage: 8 MG 8 HOURLY
  9. WYSOLONE [Concomitant]
     Dosage: 20 MG, QD
  10. THYMOGLOBULIN [Concomitant]
     Dosage: 1 MG/KG DAILY
  11. INSULIN [Concomitant]
  12. AMLODIPINE [Concomitant]
     Dosage: 5 MG, QD
     Dates: start: 20111109
  13. VALGANCICLOVIR HYDROCHLORIDE [Concomitant]
     Dosage: UNK
  14. SEPTRAN [Concomitant]
     Dosage: UNK
  15. PRAZOPRESS//PRAZOSIN [Concomitant]
     Dosage: UNK

REACTIONS (13)
  - Kidney transplant rejection [Unknown]
  - Hypertension [Unknown]
  - Crepitations [Unknown]
  - Genital burning sensation [Unknown]
  - Respiratory rate increased [Unknown]
  - Nasopharyngitis [Unknown]
  - Heart rate increased [Unknown]
  - Musculoskeletal pain [Unknown]
  - Oedema peripheral [Unknown]
  - Blood glucose increased [Unknown]
  - Platelet count decreased [Unknown]
  - Haemoglobin decreased [Unknown]
  - Cough [Unknown]
